FAERS Safety Report 7902835-7 (Version None)
Quarter: 2011Q4

REPORT INFORMATION
  Report Type: 
  Country: None (occurrence: None)
  Receive Date: 20111109
  Receipt Date: 20111104
  Transmission Date: 20120403
  Serious: Yes (Other)
  Sender: FDA-Public Use
  Company Number: US-SP-2011-02676

PATIENT
  Sex: Female

DRUGS (1)
  1. TUBERSOL [Suspect]
     Indication: TUBERCULIN TEST
     Route: 023
     Dates: start: 20110506, end: 20110506

REACTIONS (5)
  - CONVULSION [None]
  - PRESYNCOPE [None]
  - EYE MOVEMENT DISORDER [None]
  - DIZZINESS [None]
  - MUSCLE TWITCHING [None]
